FAERS Safety Report 4732587-3 (Version None)
Quarter: 2005Q3

REPORT INFORMATION
  Report Type: 
  Country: None (occurrence: None)
  Receive Date: 20050803
  Receipt Date: 20050722
  Transmission Date: 20060218
  Serious: Yes (Hospitalization, Other)
  Sender: FDA-Public Use
  Company Number: GB-JNJFOC-20050704633

PATIENT
  Sex: Male
  Weight: 58 kg

DRUGS (5)
  1. REMICADE [Suspect]
     Indication: RHEUMATOID ARTHRITIS
     Route: 042
  2. PREDNISOLONE [Concomitant]
     Route: 065
  3. ACETAMINOPHEN W/ CODEINE [Concomitant]
     Route: 065
  4. ACETAMINOPHEN W/ CODEINE [Concomitant]
     Route: 065
  5. CHEMOTHERAPY [Concomitant]
     Route: 065

REACTIONS (2)
  - DYSPHASIA [None]
  - TRANSIENT ISCHAEMIC ATTACK [None]
